FAERS Safety Report 5526494-6 (Version None)
Quarter: 2007Q4

REPORT INFORMATION
  Report Type: 
  Country: None (occurrence: None)
  Receive Date: 20071123
  Receipt Date: 20070508
  Transmission Date: 20080405
  Serious: Yes (Other)
  Sender: FDA-Public Use
  Company Number: US-JNJFOC-20070107074

PATIENT
  Age: 94 Year
  Sex: Female

DRUGS (7)
  1. LEVAQUIN [Suspect]
     Indication: PNEUMONIA
     Dosage: 500 MG, 1 IN 1 DAY, INTRAVENOUS
     Route: 042
     Dates: start: 20061031, end: 20061031
  2. SYNTHROID (LEVOTHYROXINE SODIUM) UNSPECIFIED [Concomitant]
  3. VANCOMYCIN [Concomitant]
  4. K (POTASSIUM) UNSPECIIFED [Concomitant]
  5. NEXIUM (ESOMEPRAZOLE) UNSPECIFIED [Concomitant]
  6. ASPIRIN [Concomitant]
  7. TYLENOL (PARACETAMOL) UNSPECIFIED [Concomitant]

REACTIONS (1)
  - INTERNATIONAL NORMALISED RATIO INCREASED [None]
